FAERS Safety Report 25388960 (Version 1)
Quarter: 2025Q2

REPORT INFORMATION
  Report Type: Spontaneous
  Country: US (occurrence: US)
  Receive Date: 20250603
  Receipt Date: 20250603
  Transmission Date: 20250717
  Serious: Yes (Death, Hospitalization, Other)
  Sender: AMGEN
  Company Number: US-AMGEN-USASP2025106839

PATIENT

DRUGS (2)
  1. TEPROTUMUMAB [Suspect]
     Active Substance: TEPROTUMUMAB
     Indication: Endocrine ophthalmopathy
     Route: 065
  2. RITUXIMAB [Suspect]
     Active Substance: RITUXIMAB
     Indication: Product used for unknown indication
     Route: 065

REACTIONS (15)
  - Death [Fatal]
  - Unevaluable event [Unknown]
  - Diabetes mellitus [Unknown]
  - Acute myocardial infarction [Unknown]
  - Cerebral infarction [Unknown]
  - Cardiac failure [Unknown]
  - Atrial fibrillation [Unknown]
  - Acute kidney injury [Unknown]
  - Chronic kidney disease [Unknown]
  - Inflammatory bowel disease [Unknown]
  - Deafness [Unknown]
  - Pneumonia [Unknown]
  - Sepsis [Unknown]
  - Peripheral vascular disorder [Unknown]
  - Urinary tract infection [Unknown]
